FAERS Safety Report 4296670-1 (Version None)
Quarter: 2004Q1

REPORT INFORMATION
  Report Type: 
  Country: None (occurrence: None)
  Receive Date: 20040217
  Receipt Date: 20040128
  Transmission Date: 20041129
  Serious: Yes (Hospitalization)
  Sender: FDA-Public Use
  Company Number: WAES 0401POL00012

PATIENT
  Age: 58 Year
  Sex: Female
  Weight: 58 kg

DRUGS (4)
  1. BETAMETHASONE SODIUM PHOSPHATE AND BETAMETHASONE DIPROPIONATE [Concomitant]
     Indication: ARTHRALGIA
     Route: 051
     Dates: start: 20030105
  2. RANITIDINE [Concomitant]
     Dates: start: 20040115
  3. VIOXX [Concomitant]
     Indication: ARTHRALGIA
     Route: 048
     Dates: start: 20040105
  4. ZOCOR [Suspect]
     Indication: HYPERLIPIDAEMIA
     Route: 048
     Dates: start: 20031101, end: 20040119

REACTIONS (1)
  - MYALGIA [None]
